FAERS Safety Report 6501348-7 (Version None)
Quarter: 2009Q4

REPORT INFORMATION
  Report Type: 
  Country: None (occurrence: None)
  Receive Date: 20091127
  Receipt Date: 20081031
  Transmission Date: 20100525
  Serious: Yes (Other)
  Sender: FDA-Public Use
  Company Number: WAES 0804USA02090

PATIENT
  Age: 68 Year
  Sex: Female
  Weight: 46.7205 kg

DRUGS (1)
  1. FOSAMAX [Suspect]
     Indication: OSTEOPOROSIS
     Dosage: 70 MG/PO
     Route: 048
     Dates: start: 20020101, end: 20060401

REACTIONS (18)
  - BASAL CELL CARCINOMA [None]
  - BLOOD CHOLESTEROL INCREASED [None]
  - BREAST CYST [None]
  - CONSTIPATION [None]
  - DENTAL CARIES [None]
  - DYSGEUSIA [None]
  - EPISTAXIS [None]
  - FAT TISSUE INCREASED [None]
  - GINGIVAL BLEEDING [None]
  - HEARING IMPAIRED [None]
  - LEFT VENTRICULAR HYPERTROPHY [None]
  - ORAL INFECTION [None]
  - ORAL PAIN [None]
  - OSTEONECROSIS [None]
  - RAYNAUD'S PHENOMENON [None]
  - TOOTH FRACTURE [None]
  - TOOTHACHE [None]
  - URINARY TRACT INFECTION [None]
